FAERS Safety Report 4886919-6 (Version None)
Quarter: 2006Q1

REPORT INFORMATION
  Report Type: 
  Country: None (occurrence: None)
  Receive Date: 20060119
  Receipt Date: 20060109
  Transmission Date: 20060701
  Serious: Yes (Life-Threatening, Hospitalization)
  Sender: FDA-Public Use
  Company Number: 2006-DE-00104GD

PATIENT
  Age: 19 Year
  Sex: Female

DRUGS (4)
  1. ACETAMINOPHEN [Suspect]
     Dosage: 8 G, PO
     Route: 048
  2. NAPROXINE (NAPROXINE) [Suspect]
     Dosage: 10 G, PO
     Route: 048
  3. FERROUS SULFATE TAB [Suspect]
     Dosage: 3 G IRON (SUSTAINED RELEASE FERROUS SULPHATE), PO
     Route: 048
  4. CETIRIZINE HCL [Suspect]
     Dosage: 100 MG, PO
     Route: 048

REACTIONS (9)
  - ALCOHOL USE [None]
  - BRAIN OEDEMA [None]
  - DISORIENTATION [None]
  - DRUG INTERACTION [None]
  - HEPATIC FAILURE [None]
  - HEPATIC NECROSIS [None]
  - LIVER TRANSPLANT [None]
  - MULTIPLE DRUG OVERDOSE [None]
  - RESTLESSNESS [None]
